FAERS Safety Report 14776971 (Version 3)
Quarter: 2018Q2

REPORT INFORMATION
  Report Type: Spontaneous
  Country: JP (occurrence: JP)
  Receive Date: 20180419
  Receipt Date: 20180517
  Transmission Date: 20180711
  Serious: Yes (Hospitalization)
  Sender: FDA-Public Use
  Company Number: JP-ALK-ABELLO A/S-2017AA001942

PATIENT

DRUGS (2)
  1. MITICURE MITE SUBLINGUAL TABLET [Suspect]
     Active Substance: DERMATOPHAGOIDES FARINAE\DERMATOPHAGOIDES PTERONYSSINUS
     Indication: RHINITIS ALLERGIC
     Dosage: 3300 JAU, QD
     Route: 060
     Dates: start: 20170106, end: 20170112
  2. MITICURE MITE SUBLINGUAL TABLET [Suspect]
     Active Substance: DERMATOPHAGOIDES FARINAE\DERMATOPHAGOIDES PTERONYSSINUS
     Dosage: 10000 JAU, QD
     Route: 060
     Dates: start: 20170113, end: 201702

REACTIONS (2)
  - Abdominal pain [Recovered/Resolved]
  - Acute disseminated encephalomyelitis [Recovering/Resolving]

NARRATIVE: CASE EVENT DATE: 201702
